FAERS Safety Report 4867899-6 (Version None)
Quarter: 2005Q4

REPORT INFORMATION
  Report Type: 
  Country: None (occurrence: None)
  Receive Date: 20051227
  Receipt Date: 20051209
  Transmission Date: 20060501
  Serious: Yes (Hospitalization)
  Sender: FDA-Public Use
  Company Number: FR-JNJFOC-20051202888

PATIENT
  Age: 70 Year
  Sex: Male
  Weight: 62 kg

DRUGS (13)
  1. RISPERDAL [Suspect]
     Dosage: 2 MG, 2 IN 1 DAY, ORAL; 1 MG, IN 1 DAY, ORAL
     Route: 048
     Dates: end: 20050922
  2. RISPERDAL [Suspect]
     Dosage: 2 MG, 2 IN 1 DAY, ORAL; 1 MG, IN 1 DAY, ORAL
     Route: 048
     Dates: start: 20050923
  3. THERALENE (ALIMEMAZINE TARTRATE) [Suspect]
     Dates: end: 20050925
  4. CORVASAL (MOLSIDOMINE) [Concomitant]
  5. NITRIDERM (GLYCERYL TRINITRATE) [Concomitant]
  6. FUROSEMIDE [Concomitant]
  7. POTASSIUM CHLORIDE [Concomitant]
  8. PULMICORT [Concomitant]
  9. PREVISCAN (FLUINDIONE) [Concomitant]
  10. BRICANYL [Concomitant]
  11. ATROVENT [Concomitant]
  12. OXYGEN (OXYGEN) [Concomitant]
  13. CEFPODOXIME PROXETIL [Concomitant]

REACTIONS (4)
  - ABASIA [None]
  - DYSPNOEA [None]
  - EXTRAPYRAMIDAL DISORDER [None]
  - LUNG NEOPLASM [None]
